FAERS Safety Report 11249989 (Version 1)
Quarter: 2015Q3

REPORT INFORMATION
  Report Type: Spontaneous
  Country: US (occurrence: US)
  Receive Date: 20150708
  Receipt Date: 20150708
  Transmission Date: 20151125
  Serious: No
  Sender: FDA-Public Use
  Company Number: US-ELI_LILLY_AND_COMPANY-US201006000716

PATIENT
  Sex: Male

DRUGS (1)
  1. SYMBYAX [Suspect]
     Active Substance: FLUOXETINE HYDROCHLORIDE\OLANZAPINE
     Indication: DEPRESSION
     Dosage: UNK, DAILY (1/D)
     Route: 065
     Dates: start: 201004, end: 20100520

REACTIONS (3)
  - Fluid retention [Recovered/Resolved]
  - Feeling jittery [Recovered/Resolved]
  - Adverse event [Recovered/Resolved]
